FAERS Safety Report 7188593-5 (Version None)
Quarter: 2010Q4

REPORT INFORMATION
  Report Type: 
  Country: None (occurrence: None)
  Receive Date: 20101222
  Receipt Date: 20100723
  Transmission Date: 20110411
  Serious: No
  Sender: FDA-Public Use
  Company Number: US-AMGEN-KDL426741

PATIENT

DRUGS (1)
  1. ENBREL [Suspect]
     Indication: RHEUMATOID ARTHRITIS
     Dosage: 25 MG, 2 TIMES/WK
     Route: 058
     Dates: start: 20000820

REACTIONS (6)
  - BACK PAIN [None]
  - CONTUSION [None]
  - DIZZINESS [None]
  - FALL [None]
  - MUSCLE INJURY [None]
  - PAIN IN EXTREMITY [None]
